FAERS Safety Report 13102434 (Version 1)
Quarter: 2017Q1

REPORT INFORMATION
  Report Type: Spontaneous
  Country: US (occurrence: US)
  Receive Date: 20170110
  Receipt Date: 20170110
  Transmission Date: 20170428
  Serious: No
  Sender: FDA-Public Use
  Company Number: US-TARO-2016TAR00784

PATIENT
  Age: 90 Year
  Sex: Female
  Weight: 56.24 kg

DRUGS (5)
  1. DESOXIMETASONE CREAM USP 0.05% [Suspect]
     Active Substance: DESOXIMETASONE
     Indication: PRURITUS
     Dosage: UNK UNK, 1X/DAY
     Route: 061
     Dates: start: 20160908, end: 20160909
  2. BYSTOLIC [Concomitant]
     Active Substance: NEBIVOLOL HYDROCHLORIDE
  3. NORVASC [Concomitant]
     Active Substance: AMLODIPINE BESYLATE
     Dosage: UNK, AS NEEDED
  4. VITAMIN D [Concomitant]
     Active Substance: CHOLECALCIFEROL
  5. CALCIUM [Concomitant]
     Active Substance: CALCIUM

REACTIONS (6)
  - Palpitations [Unknown]
  - Angina pectoris [Recovered/Resolved]
  - Eye irritation [Recovering/Resolving]
  - Blood pressure increased [Recovered/Resolved]
  - Malaise [Recovering/Resolving]
  - Product substitution issue [Not Recovered/Not Resolved]

NARRATIVE: CASE EVENT DATE: 2016
